FAERS Safety Report 9882891 (Version 2)
Quarter: 2014Q1

REPORT INFORMATION
  Report Type: Other
  Country: US (occurrence: US)
  Receive Date: 20140207
  Receipt Date: 20140207
  Transmission Date: 20141002
  Serious: No
  Sender: FDA-Public Use
  Company Number: US-ACORDA-ACO_38567_2013

PATIENT
  Sex: Female

DRUGS (2)
  1. AMPYRA [Suspect]
     Indication: MULTIPLE SCLEROSIS
     Dosage: UNK, BID
     Route: 065
     Dates: start: 2012, end: 2012
  2. AMPYRA [Suspect]
     Dosage: UNK, BID
     Route: 065
     Dates: start: 201309

REACTIONS (1)
  - Temporomandibular joint syndrome [Recovered/Resolved]
